FAERS Safety Report 17999378 (Version 1)
Quarter: 2020Q3

REPORT INFORMATION
  Report Type: Spontaneous
  Country: ES (occurrence: ES)
  Receive Date: 20200709
  Receipt Date: 20200709
  Transmission Date: 20201103
  Serious: Yes (Hospitalization)
  Sender: FDA-Public Use
  Company Number: NVSC2020ES188331

PATIENT
  Age: 76 Year
  Sex: Female

DRUGS (2)
  1. IMUREL [Suspect]
     Active Substance: AZATHIOPRINE SODIUM
     Indication: POLYSEROSITIS
     Dosage: 50 MG, Q24H 1?0?0
     Route: 048
     Dates: start: 20200330, end: 20200522
  2. HYDROXYCHLOROQUINE [Suspect]
     Active Substance: HYDROXYCHLOROQUINE
     Indication: POLYSEROSITIS
     Dosage: 300 MG, Q24H (200 MG (1?0?0.5))
     Route: 048
     Dates: start: 20200213

REACTIONS (1)
  - Hepatitis [Recovering/Resolving]

NARRATIVE: CASE EVENT DATE: 20200522
